FAERS Safety Report 22594969 (Version 2)
Quarter: 2023Q2

REPORT INFORMATION
  Report Type: Spontaneous
  Country: IT (occurrence: IT)
  Receive Date: 20230613
  Receipt Date: 20230626
  Transmission Date: 20230721
  Serious: Yes (Other)
  Sender: FDA-Public Use
  Company Number: None

PATIENT
  Age: 57 Year
  Sex: Female

DRUGS (6)
  1. BEVACIZUMAB [Suspect]
     Active Substance: BEVACIZUMAB
     Indication: Rectal adenocarcinoma
     Dosage: 315 MILLIGRAM
     Route: 042
     Dates: start: 20220120, end: 20220120
  2. OXALIPLATIN [Suspect]
     Active Substance: OXALIPLATIN
     Indication: Rectal adenocarcinoma
     Dosage: 115 MILLIGRAM
     Route: 042
     Dates: start: 20220120, end: 20220120
  3. FLUOROURACIL [Suspect]
     Active Substance: FLUOROURACIL
     Indication: Rectal adenocarcinoma
     Dosage: 680 MILLIGRAM
     Route: 042
     Dates: start: 20220120, end: 20220120
  4. FLUOROURACIL [Suspect]
     Active Substance: FLUOROURACIL
     Dosage: 4080 MILLIGRAM
     Route: 042
     Dates: start: 20220120, end: 20220120
  5. LEVOLEUCOVORIN [Concomitant]
     Active Substance: LEVOLEUCOVORIN
     Dosage: 340 MILLIGRAM
     Route: 065
  6. ALOXI [Concomitant]
     Active Substance: PALONOSETRON HYDROCHLORIDE
     Dosage: UNK
     Route: 065

REACTIONS (3)
  - Neutropenia [Not Recovered/Not Resolved]
  - Nausea [Recovering/Resolving]
  - Asthenia [Recovering/Resolving]

NARRATIVE: CASE EVENT DATE: 20220121
